FAERS Safety Report 25300738 (Version 2)
Quarter: 2025Q2

REPORT INFORMATION
  Report Type: Spontaneous
  Country: BD (occurrence: BD)
  Receive Date: 20250512
  Receipt Date: 20250520
  Transmission Date: 20250716
  Serious: Yes (Other)
  Sender: ROCHE
  Company Number: BD-ROCHE-10000278438

PATIENT
  Sex: Female

DRUGS (10)
  1. HERCEPTIN [Suspect]
     Active Substance: TRASTUZUMAB
     Indication: Breast cancer metastatic
     Route: 065
  2. PHESGO [Suspect]
     Active Substance: HYALURONIDASE-ZZXF\PERTUZUMAB\TRASTUZUMAB
     Indication: Product used for unknown indication
     Route: 065
  3. CARBOPLATIN [Concomitant]
     Active Substance: CARBOPLATIN
     Indication: Breast cancer metastatic
  4. GEMCITABINE [Concomitant]
     Active Substance: GEMCITABINE
     Indication: Breast cancer metastatic
  5. Tab Citofer [Concomitant]
  6. Tab Ceevit [Concomitant]
  7. Tab ursocol [Concomitant]
  8. Syrup Tulac [Concomitant]
  9. Cap Daflon [Concomitant]
  10. Tab Famotid [Concomitant]

REACTIONS (2)
  - Disease progression [Unknown]
  - Decreased appetite [Unknown]
